FAERS Safety Report 24679528 (Version 1)
Quarter: 2024Q4

REPORT INFORMATION
  Report Type: Spontaneous
  Country: VN (occurrence: VN)
  Receive Date: 20241129
  Receipt Date: 20241129
  Transmission Date: 20250115
  Serious: Yes (Hospitalization)
  Sender: ORGANON
  Company Number: VN-ORGANON-O2411VNM001896

PATIENT
  Age: 82 Year
  Sex: Female

DRUGS (1)
  1. DIPROSPAN [Suspect]
     Active Substance: BETAMETHASONE DIPROPIONATE\BETAMETHASONE SODIUM PHOSPHATE
     Dosage: UNK

REACTIONS (8)
  - Macule [Recovering/Resolving]
  - Skin necrosis [Recovering/Resolving]
  - Blister [Recovering/Resolving]
  - Mucosal erosion [Recovering/Resolving]
  - Conjunctivitis [Recovering/Resolving]
  - Mucosal pain [Recovering/Resolving]
  - Burning sensation mucosal [Recovering/Resolving]
  - Pruritus [Recovering/Resolving]

NARRATIVE: CASE EVENT DATE: 20231123
